FAERS Safety Report 8127659-X (Version None)
Quarter: 2012Q1

REPORT INFORMATION
  Report Type: 
  Country: None (occurrence: None)
  Receive Date: 20120210
  Receipt Date: 20120208
  Transmission Date: 20120608
  Serious: Yes (Death)
  Sender: FDA-Public Use
  Company Number: US-ASTELLAS-2011US006205

PATIENT
  Sex: Female

DRUGS (1)
  1. ERLOTINIB HYDROCHLORIDE [Suspect]
     Indication: LUNG CARCINOMA CELL TYPE UNSPECIFIED STAGE 0
     Dosage: 150 MG, UID/QD
     Route: 048
     Dates: start: 20110901, end: 20120106

REACTIONS (9)
  - NAUSEA [None]
  - DIZZINESS [None]
  - WEIGHT DECREASED [None]
  - DYSPNOEA [None]
  - ASTHENIA [None]
  - DEATH [None]
  - STOMATITIS [None]
  - DIARRHOEA [None]
  - AGEUSIA [None]
